FAERS Safety Report 8419442 (Version 5)
Quarter: 2013Q3

REPORT INFORMATION
  Report Type: Report from Study
  Country: CA (occurrence: CA)
  Receive Date: 20120221
  Receipt Date: 20130823
  Transmission Date: 20140515
  Serious: Yes (Other)
  Sender: FDA-Public Use
  Company Number: PHHY2011CA30685

PATIENT
  Age: 85 Year
  Sex: Female

DRUGS (13)
  1. EXJADE [Suspect]
     Indication: MYELODYSPLASTIC SYNDROME
     Dosage: 1000 MG,
     Route: 048
  2. EXJADE [Suspect]
     Dosage: 2000 MG, QD
     Route: 048
     Dates: start: 201001, end: 20110415
  3. EXJADE [Suspect]
     Dosage: UNK
     Dates: end: 20110416
  4. EXJADE [Suspect]
     Dosage: 2000 MG, DAILY
     Route: 048
     Dates: start: 20110520
  5. EXJADE [Suspect]
     Dosage: 750 MG,
     Route: 048
  6. EXJADE [Suspect]
     Dosage: 2000 MG, QD
     Route: 048
  7. BLOOD TRANSFUSION, AUXILIARY PRODUCTS [Concomitant]
     Dosage: UNK UKN, UNK, EVERY 2 WEEKS
  8. BLOOD TRANSFUSION, AUXILIARY PRODUCTS [Concomitant]
     Dosage: UNK UKN, UNK
     Dates: start: 20130111
  9. LEVOTHYROXINE [Concomitant]
     Dosage: UNK
  10. PREMARIN [Concomitant]
     Dosage: UNK
  11. HYDROCHLOROTHIAZIDE [Concomitant]
     Dosage: UNK
  12. LASIX [Concomitant]
     Dosage: UNK UKN, UNK
  13. ENZYMES [Concomitant]
     Dosage: UNK UKN, UNK

REACTIONS (14)
  - Weight decreased [Unknown]
  - Haemoglobin decreased [Unknown]
  - Macular degeneration [Not Recovered/Not Resolved]
  - Protein urine present [Unknown]
  - Fatigue [Unknown]
  - Fluid retention [Recovered/Resolved]
  - Influenza [Unknown]
  - Vision blurred [Unknown]
  - Muscle spasms [Unknown]
  - Abdominal distension [Unknown]
  - Haemorrhoids [Unknown]
  - Serum ferritin increased [Unknown]
  - Diarrhoea [Unknown]
  - Blood iron increased [Unknown]
